FAERS Safety Report 5808039-6 (Version None)
Quarter: 2008Q3

REPORT INFORMATION
  Report Type: 
  Country: None (occurrence: None)
  Receive Date: 20080708
  Receipt Date: 20080623
  Transmission Date: 20090109
  Serious: Yes (Other)
  Sender: FDA-Public Use
  Company Number: 2008S1010833

PATIENT
  Age: 83 Year
  Sex: 0

DRUGS (1)
  1. OMEPRAZOLE [Suspect]
     Indication: ULCER
     Dosage: 1 DF; ORAL
     Route: 048
     Dates: start: 20080605, end: 20080607

REACTIONS (1)
  - RETCHING [None]
